FAERS Safety Report 24306236 (Version 1)
Quarter: 2024Q3

REPORT INFORMATION
  Report Type: Spontaneous
  Country: US (occurrence: US)
  Receive Date: 20240911
  Receipt Date: 20240911
  Transmission Date: 20241017
  Serious: No
  Sender: SANDOZ
  Company Number: US-SANDOZ-SDZ2024US079361

PATIENT
  Age: 38 Year
  Sex: Female

DRUGS (1)
  1. HYRIMOZ [Suspect]
     Active Substance: ADALIMUMAB-ADAZ
     Indication: Crohn^s disease
     Dosage: STARTER DOSE OF 80 MG X 2 INJECTIONS (ONE INJECTION IN EACH THIGH) - 160 MG TOTAL ON DAY 1
     Route: 058
     Dates: start: 20240909

REACTIONS (2)
  - Restlessness [Not Recovered/Not Resolved]
  - Myalgia [Not Recovered/Not Resolved]

NARRATIVE: CASE EVENT DATE: 20240909
